FAERS Safety Report 5256808-6 (Version None)
Quarter: 2007Q1

REPORT INFORMATION
  Report Type: 
  Country: None (occurrence: None)
  Receive Date: 20070306
  Receipt Date: 20070302
  Transmission Date: 20070707
  Serious: Yes (Hospitalization, Disabling)
  Sender: FDA-Public Use
  Company Number: US-BOEHRINGER INGELHEIM PHARMACEUTICALS, INC.-2007-BP-01990BP

PATIENT
  Age: 50 Year
  Sex: Male

DRUGS (9)
  1. APTIVUS/RITONAVIR CAPSULES [Suspect]
     Indication: HIV INFECTION
     Dosage: TPV/RTV  500MG/200MG BID
     Route: 048
     Dates: start: 20051001, end: 20060501
  2. APTIVUS/RITONAVIR CAPSULES [Suspect]
     Indication: ACQUIRED IMMUNODEFICIENCY SYNDROME
  3. PREZISTA [Concomitant]
     Route: 048
     Dates: start: 20060510, end: 20070219
  4. NORVIR [Concomitant]
     Route: 048
     Dates: start: 20060510, end: 20070219
  5. BACTRIM [Concomitant]
     Route: 048
     Dates: start: 20041101
  6. TRUVADA [Concomitant]
     Route: 048
     Dates: start: 20041123, end: 20050808
  7. TRUVADA [Concomitant]
     Route: 048
     Dates: start: 20060510, end: 20070219
  8. FUZEON [Concomitant]
     Route: 058
     Dates: start: 20051001, end: 20060327
  9. TMC [Concomitant]
     Route: 048
     Dates: start: 20061128, end: 20070219

REACTIONS (3)
  - CEREBRAL INFARCTION [None]
  - GASTROINTESTINAL DISORDER [None]
  - HAEMORRHAGE INTRACRANIAL [None]
